FAERS Safety Report 10166327 (Version 1)
Quarter: 2014Q2

REPORT INFORMATION
  Report Type: Spontaneous
  Country: US (occurrence: US)
  Receive Date: 20140512
  Receipt Date: 20140512
  Transmission Date: 20141212
  Serious: Yes (Hospitalization, Other)
  Sender: FDA-Public Use
  Company Number: US-AMGEN-USASP2014033110

PATIENT
  Age: 63 Year
  Sex: Male

DRUGS (9)
  1. NPLATE [Suspect]
     Indication: IMMUNE THROMBOCYTOPENIC PURPURA
     Dosage: 5MCG/KG, OR 330MCG, QWK
     Route: 065
     Dates: start: 20140121
  2. TORISEL [Concomitant]
     Dosage: UNK
     Route: 065
     Dates: start: 20140121
  3. ZOMETA [Concomitant]
     Route: 065
  4. ANSAID [Concomitant]
     Route: 065
  5. VITAMIN D                          /00107901/ [Concomitant]
     Route: 065
  6. SIMVASTIN [Concomitant]
     Dosage: 10 MG, UNK
     Route: 065
  7. FENTANYL [Concomitant]
     Route: 065
  8. TRAMADOL [Concomitant]
     Dosage: 50 UNK, UNK
     Route: 065
  9. FINASTERIDE [Concomitant]
     Dosage: 5 MG, UNK
     Route: 065

REACTIONS (9)
  - Thrombocytopenia [Unknown]
  - Haemorrhage [Unknown]
  - Renal cancer [Unknown]
  - Nausea [Unknown]
  - Vomiting [Unknown]
  - Anaemia [Unknown]
  - Iron deficiency [Unknown]
  - Drug dose omission [Unknown]
  - Weight increased [Unknown]
